APPROVED DRUG PRODUCT: KERLONE
Active Ingredient: BETAXOLOL HYDROCHLORIDE
Strength: 20MG **Federal Register determination that product was not discontinued or withdrawn for safety or effectiveness reasons**
Dosage Form/Route: TABLET;ORAL
Application: N019507 | Product #002
Applicant: SANOFI AVENTIS US LLC
Approved: Oct 27, 1989 | RLD: No | RS: No | Type: DISCN